FAERS Safety Report 25597425 (Version 1)
Quarter: 2025Q3

REPORT INFORMATION
  Report Type: Spontaneous
  Country: US (occurrence: US)
  Receive Date: 20250723
  Receipt Date: 20250723
  Transmission Date: 20251021
  Serious: Yes (Hospitalization, Other)
  Sender: BLUEPRINT MEDICINES
  Company Number: US-Blueprint Medicines Corporation-2025-AER-01564

PATIENT
  Age: 58 Year
  Sex: Male

DRUGS (1)
  1. AYVAKIT [Suspect]
     Active Substance: AVAPRITINIB
     Indication: Mastocytoma
     Route: 065

REACTIONS (6)
  - Nephrolithiasis [Recovered/Resolved]
  - Skin lesion [Unknown]
  - Platelet count decreased [Unknown]
  - Ingrowing nail [Unknown]
  - Nail bed infection [Unknown]
  - Brain fog [Unknown]

NARRATIVE: CASE EVENT DATE: 20220101
